FAERS Safety Report 8985160 (Version 2)
Quarter: 2013Q1

REPORT INFORMATION
  Report Type: Spontaneous
  Country: CO (occurrence: CO)
  Receive Date: 20121226
  Receipt Date: 20130115
  Transmission Date: 20140127
  Serious: Yes (Death, Hospitalization, Other)
  Sender: FDA-Public Use
  Company Number: CO-PFIZER INC-2012326361

PATIENT
  Age: 82 Year
  Sex: Male

DRUGS (2)
  1. LYRICA [Suspect]
     Indication: HERPES ZOSTER
     Dosage: UNK
     Dates: start: 2008
  2. PLAVIX [Concomitant]
     Dosage: UNK

REACTIONS (3)
  - Lung neoplasm malignant [Fatal]
  - Metastasis [Fatal]
  - Trigeminal nerve disorder [Unknown]
